FAERS Safety Report 4908940-1 (Version None)
Quarter: 2006Q1

REPORT INFORMATION
  Report Type: 
  Country: None (occurrence: None)
  Receive Date: 20060209
  Receipt Date: 20060126
  Transmission Date: 20060701
  Serious: Yes (Death, Hospitalization)
  Sender: FDA-Public Use
  Company Number: A-US2005-11270

PATIENT
  Age: 25 Year
  Sex: Female

DRUGS (24)
  1. TRACLEER [Suspect]
     Indication: PULMONARY HYPERTENSION
     Dosage: SEE IMAGE
     Route: 048
     Dates: start: 20041101, end: 20050101
  2. TRACLEER [Suspect]
     Indication: PULMONARY HYPERTENSION
     Dosage: SEE IMAGE
     Route: 048
     Dates: start: 20050101
  3. HYDROCORTISONE [Concomitant]
  4. LASIX [Concomitant]
  5. POTASSIUM CHLORIDE [Concomitant]
  6. SYNTHROID [Concomitant]
  7. DDVAP (DESMOPRESSIN) [Concomitant]
  8. PREVACID [Concomitant]
  9. CALCIUM (CALCIUM) [Concomitant]
  10. VIAGRA [Concomitant]
  11. COUMADIN [Concomitant]
  12. LACTULOSE [Concomitant]
  13. CARAFATRE (SUCRALFATE) [Concomitant]
  14. DARBEPOETIN [Concomitant]
  15. VENTAVIS [Concomitant]
  16. DEXTROSE INFUSION FUILD 5% (GLUCOSE) [Concomitant]
  17. FERROUS SULFATE TAB [Concomitant]
  18. DIGOXIN [Concomitant]
  19. DESENEX OINTMENT (ZINC UNDECYLENATE, WHITE SOFT PARAFIN, UNDECYLENIC A [Concomitant]
  20. MULTIVITAMINS , PLAIN [Concomitant]
  21. CALCIUM WITH VITAMIN D (ERGOCALCIFEROL, CALCIUM SODIUM LACTATE, CALCIU [Concomitant]
  22. OXYGEN (OXYGEN) [Concomitant]
  23. MEROPENEM (MEROPENEM) [Concomitant]
  24. ITRACONAZOLE [Concomitant]

REACTIONS (28)
  - ANAEMIA OF CHRONIC DISEASE [None]
  - ASPIRATION [None]
  - ASPIRATION BRONCHIAL [None]
  - BACTERIA URINE IDENTIFIED [None]
  - BACTERIAL SEPSIS [None]
  - BLOOD BILIRUBIN INCREASED [None]
  - BRADYCARDIA [None]
  - CARDIAC ARREST [None]
  - CATHETER RELATED INFECTION [None]
  - COAGULOPATHY [None]
  - DECREASED APPETITE [None]
  - DIALYSIS [None]
  - DRUG TOXICITY [None]
  - ENCEPHALOPATHY [None]
  - ENTEROCOCCAL BACTERAEMIA [None]
  - FUNGAL SEPSIS [None]
  - HEPARIN-INDUCED THROMBOCYTOPENIA [None]
  - HEPATIC FAILURE [None]
  - HYPOGLYCAEMIA [None]
  - HYPOTENSION [None]
  - INTERNATIONAL NORMALISED RATIO INCREASED [None]
  - KLEBSIELLA INFECTION [None]
  - RENAL FAILURE ACUTE [None]
  - RESPIRATORY FAILURE [None]
  - RIGHT VENTRICULAR FAILURE [None]
  - SERRATIA BACTERAEMIA [None]
  - SERRATIA SEPSIS [None]
  - VOMITING [None]
